FAERS Safety Report 25264733 (Version 1)
Quarter: 2025Q2

REPORT INFORMATION
  Report Type: Spontaneous
  Country: LT (occurrence: LT)
  Receive Date: 20250502
  Receipt Date: 20250502
  Transmission Date: 20250717
  Serious: Yes (Hospitalization, Other)
  Sender: AMGEN
  Company Number: LT-AMGEN-LTUSP2025081603

PATIENT
  Age: 10 Year
  Sex: Female

DRUGS (14)
  1. FILGRASTIM [Suspect]
     Active Substance: FILGRASTIM
     Indication: Myelosuppression
     Route: 065
  2. ACYCLOVIR [Suspect]
     Active Substance: ACYCLOVIR
     Dosage: 250 MILLIGRAM, TID FOR 5 DAYS
     Route: 040
  3. DEXAMETHASONE [Concomitant]
     Active Substance: DEXAMETHASONE
     Dosage: 4 MILLIGRAM, BID FOR 28 DAYS
  4. VINCRISTINE [Concomitant]
     Active Substance: VINCRISTINE
     Route: 040
  5. DAUNORUBICIN [Concomitant]
     Active Substance: DAUNORUBICIN
  6. MERCAPTOPURINE [Concomitant]
     Active Substance: MERCAPTOPURINE
     Dosage: 75 MILLIGRAM, QD
     Route: 048
  7. PEG/L-ASPARAGINASE [Concomitant]
     Active Substance: PEGASPARGASE
     Route: 040
  8. PEG/L-ASPARAGINASE [Concomitant]
     Active Substance: PEGASPARGASE
     Route: 040
  9. METHOTREXATE [Concomitant]
     Active Substance: METHOTREXATE
     Route: 029
  10. METHOTREXATE [Concomitant]
     Active Substance: METHOTREXATE
     Route: 029
  11. CEFTAZIDIME [Concomitant]
     Active Substance: CEFTAZIDIME
     Dosage: 1.5 GRAM, TID
     Route: 040
  12. MEROPENEM [Concomitant]
     Active Substance: MEROPENEM
     Dosage: 800 MILLIGRAM, TID FOR 6 DAYS
     Route: 040
  13. CYTARABINE [Concomitant]
     Active Substance: CYTARABINE
     Route: 040
  14. MERCAPTOPURINE [Concomitant]
     Active Substance: MERCAPTOPURINE
     Dosage: 50 MILLIGRAM, BID

REACTIONS (4)
  - Klebsiella test positive [Unknown]
  - Pancreatitis acute [Unknown]
  - Antimicrobial susceptibility test resistant [Unknown]
  - Therapy non-responder [Unknown]
